FAERS Safety Report 14655425 (Version 1)
Quarter: 2018Q1

REPORT INFORMATION
  Report Type: Report from Study
  Country: CO (occurrence: CO)
  Receive Date: 20180319
  Receipt Date: 20180319
  Transmission Date: 20180509
  Serious: Yes (Death, Other)
  Sender: FDA-Public Use
  Company Number: CO-ASTELLAS-2018US013889

PATIENT
  Age: 62 Year
  Sex: Male

DRUGS (1)
  1. TACROLIMUS. [Suspect]
     Active Substance: TACROLIMUS
     Indication: LIVER TRANSPLANT
     Route: 048
     Dates: start: 20160220, end: 20180304

REACTIONS (5)
  - Pyrexia [Fatal]
  - Diarrhoea [Fatal]
  - Blood glucose increased [Fatal]
  - Dyspnoea [Fatal]
  - Myocardial infarction [Fatal]
